FAERS Safety Report 16158340 (Version 1)
Quarter: 2019Q2

REPORT INFORMATION
  Report Type: Spontaneous
  Country: US (occurrence: US)
  Receive Date: 20190301
  Receipt Date: 20190301
  Transmission Date: 20190711
  Serious: No
  Sender: FDA-Public Use
  Company Number: None

PATIENT
  Age: 66 Year
  Sex: Male

DRUGS (1)
  1. GLEEVEC [Suspect]
     Active Substance: IMATINIB MESYLATE
     Dates: start: 201506

REACTIONS (5)
  - Haemorrhage [None]
  - Fall [None]
  - Urine output decreased [None]
  - Screaming [None]
  - Nightmare [None]

NARRATIVE: CASE EVENT DATE: 20190227
